FAERS Safety Report 24568649 (Version 1)
Quarter: 2024Q4

REPORT INFORMATION
  Report Type: Report from Study
  Country: US (occurrence: US)
  Receive Date: 20241031
  Receipt Date: 20241031
  Transmission Date: 20250115
  Serious: Yes (Other)
  Sender: ABBVIE
  Company Number: US-ABBVIE-5981284

PATIENT
  Age: 75 Year
  Sex: Male

DRUGS (1)
  1. HUMIRA [Suspect]
     Active Substance: ADALIMUMAB
     Indication: Uveitis
     Dosage: CITRATE FREE
     Route: 058
     Dates: start: 20201006

REACTIONS (5)
  - Eye operation [Unknown]
  - Asthma [Recovering/Resolving]
  - Transplant [Unknown]
  - Emphysema [Recovering/Resolving]
  - Eye injury [Unknown]

NARRATIVE: CASE EVENT DATE: 20201006
